FAERS Safety Report 7950256-3 (Version None)
Quarter: 2011Q4

REPORT INFORMATION
  Report Type: 
  Country: None (occurrence: None)
  Receive Date: 20111130
  Receipt Date: 20111121
  Transmission Date: 20120403
  Serious: Yes (Hospitalization)
  Sender: FDA-Public Use
  Company Number: US-BAYER-2010-002625

PATIENT
  Age: 42 Year
  Sex: Female
  Weight: 95.238 kg

DRUGS (7)
  1. ALBUTEROL [Concomitant]
     Dosage: UNK
  2. ZYRTEC [Concomitant]
     Indication: MULTIPLE ALLERGIES
     Dosage: UNK
     Dates: start: 20050101
  3. YASMIN [Suspect]
     Indication: MENORRHAGIA
     Dosage: UNK
     Dates: start: 20060101, end: 20100101
  4. LIPITOR [Concomitant]
     Dosage: UNK
  5. SINGULAIR [Concomitant]
     Indication: SEASONAL ALLERGY
     Dosage: UNK
     Dates: start: 20050101
  6. YAZ [Suspect]
     Indication: MENORRHAGIA
     Dosage: UNK
     Dates: start: 20060101, end: 20100101
  7. OMEPRAZOLE [Concomitant]
     Indication: GASTROOESOPHAGEAL REFLUX DISEASE
     Dosage: UNK
     Dates: start: 20000101

REACTIONS (3)
  - DIARRHOEA [None]
  - CHOLECYSTITIS [None]
  - CONSTIPATION [None]
